FAERS Safety Report 9961142 (Version 1)
Quarter: 2014Q1

REPORT INFORMATION
  Report Type: Spontaneous
  Country: US (occurrence: None)
  Receive Date: 20140127
  Receipt Date: 20140127
  Transmission Date: 20141002
  Serious: Yes (Other)
  Sender: FDA-Public Use
  Company Number: 1209691

PATIENT
  Age: 54 Year
  Sex: Male

DRUGS (1)
  1. ACTILYSE [Suspect]
     Indication: VASCULAR GRAFT OCCLUSION
     Dosage: 20 MG, INTRAVENOUS (NOT OTHERWISE SPECIFIED)
     Route: 042

REACTIONS (1)
  - Haematoma [None]
